FAERS Safety Report 4297009-8 (Version None)
Quarter: 2004Q1

REPORT INFORMATION
  Report Type: 
  Country: None (occurrence: None)
  Receive Date: 20040217
  Receipt Date: 20040206
  Transmission Date: 20041129
  Serious: Yes (Other)
  Sender: FDA-Public Use
  Company Number: US-BRISTOL-MYERS SQUIBB COMPANY-12500666

PATIENT
  Age: 4 Year
  Sex: Male

DRUGS (1)
  1. MAXIPIME [Suspect]
     Indication: OSTEOMYELITIS
     Dates: start: 20040101

REACTIONS (1)
  - PANCYTOPENIA [None]
